FAERS Safety Report 14475017 (Version 10)
Quarter: 2018Q4

REPORT INFORMATION
  Report Type: Spontaneous
  Country: CA (occurrence: CA)
  Receive Date: 20180201
  Receipt Date: 20181101
  Transmission Date: 20190204
  Serious: Yes (Other)
  Sender: FDA-Public Use
  Company Number: CA-CELLTRION INC.-2017CA011633

PATIENT

DRUGS (14)
  1. INFLECTRA [Suspect]
     Active Substance: INFLIXIMAB-DYYB
     Dosage: 700 MG, CYCLIC, (EVERY 8 WEEKS)
     Route: 042
     Dates: start: 20180822
  2. PREDNISONE. [Concomitant]
     Active Substance: PREDNISONE
     Dosage: 30 MG, 1X/DAY
  3. INFLECTRA [Suspect]
     Active Substance: INFLIXIMAB-DYYB
     Indication: ARTHRITIS ENTEROPATHIC
     Dosage: 470 MG, CYCLIC, (EVERY 0,2,6 WEEKS, THEN EVERY 8 WEEK
     Route: 042
     Dates: start: 20180131, end: 20180131
  4. INFLECTRA [Suspect]
     Active Substance: INFLIXIMAB-DYYB
     Dosage: 700 MG, CYCLIC, (EVERY 8 WEEKS)
     Route: 042
     Dates: start: 20180627
  5. CYMBALTA [Concomitant]
     Active Substance: DULOXETINE HYDROCHLORIDE
     Dosage: UNK
  6. INFLECTRA [Suspect]
     Active Substance: INFLIXIMAB-DYYB
     Indication: CROHN^S DISEASE
     Dosage: 470 MG, CYCLIC, (EVERY 0,2,6 WEEKS, THEN EVERY 8 WEEK
     Route: 042
     Dates: start: 20170425, end: 20170927
  7. IMURAN [Concomitant]
     Active Substance: AZATHIOPRINE
     Dosage: 150 MG, DAILY
     Route: 048
     Dates: start: 20161202
  8. VITAMIN D                          /00107901/ [Concomitant]
     Active Substance: ERGOCALCIFEROL
     Dosage: UNK
  9. INFLECTRA [Suspect]
     Active Substance: INFLIXIMAB-DYYB
     Dosage: 700 MG, CYCLIC, (EVERY 8 WEEKS) (7.6 MG/KG)
     Route: 042
     Dates: start: 20180502, end: 20180502
  10. INFLECTRA [Suspect]
     Active Substance: INFLIXIMAB-DYYB
     Dosage: 700 MG, CYCLIC, (EVERY 8 WEEKS)
     Route: 042
     Dates: start: 20181017
  11. FERROUS SULFATE. [Concomitant]
     Active Substance: FERROUS SULFATE
     Dosage: 300 MG, BID
     Route: 048
     Dates: start: 20160527
  12. INFLECTRA [Suspect]
     Active Substance: INFLIXIMAB-DYYB
     Dosage: 460 MG, CYCLIC (EVERY 8 WEEKS)
     Route: 042
     Dates: start: 20180328, end: 20180328
  13. ASACOL [Concomitant]
     Active Substance: MESALAMINE
     Dosage: 3200MG, DAILY
     Route: 048
     Dates: start: 20150728
  14. INFLECTRA [Suspect]
     Active Substance: INFLIXIMAB-DYYB
     Indication: CROHN^S DISEASE
     Dosage: 470 MG, CYCLIC, (EVERY 0,2,6 WEEKS, THEN EVERY 8 WEEK
     Route: 042
     Dates: start: 20171206, end: 20171206

REACTIONS (10)
  - Crohn^s disease [Not Recovered/Not Resolved]
  - Incorrect dose administered [Unknown]
  - Streptococcal infection [Recovering/Resolving]
  - Condition aggravated [Not Recovered/Not Resolved]
  - Weight decreased [Unknown]
  - Drug level below therapeutic [Not Recovered/Not Resolved]
  - Fall [Unknown]
  - Lower respiratory tract infection [Recovering/Resolving]
  - Nasopharyngitis [Recovering/Resolving]
  - Ligament sprain [Unknown]

NARRATIVE: CASE EVENT DATE: 20170826
